FAERS Safety Report 9288265 (Version 1)
Quarter: 2013Q2

REPORT INFORMATION
  Report Type: Spontaneous
  Country: JP (occurrence: JP)
  Receive Date: 20130514
  Receipt Date: 20130514
  Transmission Date: 20140414
  Serious: Yes (Other)
  Sender: FDA-Public Use
  Company Number: PHHY2013JP047074

PATIENT
  Age: 3 Year
  Sex: Male

DRUGS (2)
  1. NEORAL [Suspect]
     Indication: NEPHROTIC SYNDROME
     Dosage: 0.5 ML, DAILY
     Route: 048
  2. CLINDAMYCIN [Interacting]
     Indication: PNEUMONIA ASPIRATION

REACTIONS (3)
  - Pneumonia aspiration [Unknown]
  - Immunosuppressant drug level increased [Unknown]
  - Drug interaction [Unknown]
